FAERS Safety Report 15985773 (Version 1)
Quarter: 2019Q1

REPORT INFORMATION
  Report Type: Report from Study
  Country: RO (occurrence: RO)
  Receive Date: 20190220
  Receipt Date: 20190220
  Transmission Date: 20190418
  Serious: Yes (Other)
  Sender: FDA-Public Use
  Company Number: RO-GILEAD-2019-0391293

PATIENT
  Age: 61 Year
  Sex: Female

DRUGS (6)
  1. HEPATHROMBIN H [ALLANTOIN;DEXPANTHENOL;HEPARIN] [Concomitant]
  2. EGILOK [Concomitant]
     Active Substance: METOPROLOL TARTRATE
  3. LEDIPASVIR/SOFOSBUVIR [Suspect]
     Active Substance: LEDIPASVIR\SOFOSBUVIR
     Indication: CHRONIC HEPATITIS C
     Dosage: 1 DF, QD
     Route: 048
     Dates: start: 20181117, end: 20190208
  4. PRESTARIUM A [Concomitant]
     Active Substance: PERINDOPRIL ARGININE
  5. TEOTARD [Concomitant]
     Active Substance: THEOPHYLLINE ANHYDROUS
  6. NUROFEN (GSL) [Concomitant]
     Active Substance: IBUPROFEN

REACTIONS (6)
  - Headache [Recovering/Resolving]
  - Blood pressure increased [Recovered/Resolved]
  - Vascular rupture [Not Recovered/Not Resolved]
  - Fatigue [Not Recovered/Not Resolved]
  - Nasopharyngitis [Recovered/Resolved]
  - Insomnia [Not Recovered/Not Resolved]

NARRATIVE: CASE EVENT DATE: 20190205
